FAERS Safety Report 4406013-8 (Version None)
Quarter: 2004Q3

REPORT INFORMATION
  Report Type: 
  Country: None (occurrence: None)
  Receive Date: 20040723
  Receipt Date: 20040317
  Transmission Date: 20050211
  Serious: No
  Sender: FDA-Public Use
  Company Number: US-GLAXOSMITHKLINE-A0503233A

PATIENT
  Age: 73 Year
  Sex: Female

DRUGS (7)
  1. AVANDIA [Suspect]
     Dosage: 8MG PER DAY
     Route: 048
     Dates: start: 20031001
  2. TOPROL-XL [Concomitant]
  3. CLONIDINE HCL [Concomitant]
  4. XALATAN [Concomitant]
  5. STARLIX [Concomitant]
  6. AMARYL [Concomitant]
  7. TEQUIN [Concomitant]

REACTIONS (4)
  - BLOOD GLUCOSE DECREASED [None]
  - BLOOD GLUCOSE INCREASED [None]
  - FLATULENCE [None]
  - URINARY TRACT INFECTION [None]
